FAERS Safety Report 9344539 (Version 2)
Quarter: 2013Q3

REPORT INFORMATION
  Report Type: Report from Study
  Country: US (occurrence: US)
  Receive Date: 20130612
  Receipt Date: 20130731
  Transmission Date: 20140515
  Serious: Yes (Hospitalization)
  Sender: FDA-Public Use
  Company Number: US-ELI_LILLY_AND_COMPANY-US201109006583

PATIENT
  Age: 61 Year
  Sex: Female
  Weight: 58.96 kg

DRUGS (21)
  1. TERIPARATIDE [Suspect]
     Indication: OSTEOPOROSIS
     Dosage: 20 UG, QD
     Route: 058
     Dates: start: 20110718, end: 201109
  2. TERIPARATIDE [Suspect]
     Dosage: 20 UG, QD
     Route: 058
     Dates: start: 201109
  3. TERIPARATIDE [Suspect]
     Dosage: 20 UG, QD
     Route: 058
  4. TERIPARATIDE [Suspect]
     Dosage: 20 UG, QD
     Route: 058
  5. TERIPARATIDE [Suspect]
     Dosage: 20 UG, QD
     Route: 058
  6. TERIPARATIDE [Suspect]
     Dosage: 20 UG, QD
     Route: 058
  7. TERIPARATIDE [Suspect]
     Dosage: 20 UG, QD
     Route: 058
  8. TERIPARATIDE [Suspect]
     Dosage: 20 UG, QD
     Route: 058
     Dates: start: 20130604
  9. ULTRAM [Concomitant]
     Dosage: UNK, UNKNOWN
  10. NEURONTIN [Concomitant]
     Dosage: UNK, UNKNOWN
  11. NAPROXEN [Concomitant]
     Dosage: UNK, UNKNOWN
  12. TUMS 500 CALCIUM [Concomitant]
     Dosage: UNK, UNKNOWN
  13. MULTIVITAMIN [Concomitant]
  14. LEVAQUIN [Concomitant]
  15. CHLOROQUINE [Concomitant]
  16. LISINOPRIL [Concomitant]
  17. XARELTO [Concomitant]
  18. METOPROLOL [Concomitant]
     Dosage: UNK, QD
  19. VITAMIN D [Concomitant]
  20. AMBIEN [Concomitant]
  21. XANAX [Concomitant]

REACTIONS (38)
  - Hip fracture [Recovered/Resolved]
  - Fracture displacement [Unknown]
  - Hypoaesthesia [Unknown]
  - Blood pressure fluctuation [Unknown]
  - Fatigue [Unknown]
  - Somnolence [Unknown]
  - Fall [Unknown]
  - Sleep disorder due to a general medical condition [Unknown]
  - Visual impairment [Unknown]
  - Renal pain [Unknown]
  - Food allergy [Unknown]
  - Pruritus [Recovering/Resolving]
  - Nephrolithiasis [Recovered/Resolved]
  - Musculoskeletal stiffness [Unknown]
  - Pain in extremity [Unknown]
  - Back pain [Unknown]
  - Myopathy [Unknown]
  - Burning sensation [Unknown]
  - Urinary tract infection [Unknown]
  - Gait disturbance [Unknown]
  - Sleep disorder due to general medical condition, insomnia type [Unknown]
  - Restlessness [Unknown]
  - Bone disorder [Not Recovered/Not Resolved]
  - Intervertebral disc protrusion [Not Recovered/Not Resolved]
  - Arthralgia [Recovering/Resolving]
  - Malaise [Unknown]
  - Vomiting [Unknown]
  - Lung infection [Unknown]
  - Urticaria [Recovered/Resolved]
  - Blood pressure increased [Unknown]
  - Arthralgia [Not Recovered/Not Resolved]
  - Headache [Unknown]
  - Arthralgia [Unknown]
  - Pain [Recovering/Resolving]
  - Dizziness [Unknown]
  - Insomnia [Unknown]
  - Nausea [Unknown]
  - Nausea [Unknown]
